FAERS Safety Report 9263783 (Version 3)
Quarter: 2013Q3

REPORT INFORMATION
  Report Type: Spontaneous
  Country: US (occurrence: US)
  Receive Date: 20130430
  Receipt Date: 20130801
  Transmission Date: 20140515
  Serious: Yes (Hospitalization, Other)
  Sender: FDA-Public Use
  Company Number: US-BAYER-2013-051798

PATIENT
  Age: 38 Year
  Sex: Female
  Weight: 69.39 kg

DRUGS (26)
  1. YAZ [Suspect]
     Indication: CONTRACEPTION
     Dosage: UNK
     Dates: start: 200709, end: 200812
  2. YAZ [Suspect]
     Indication: MIGRAINE
  3. YAZ [Suspect]
     Indication: PREMENSTRUAL DYSPHORIC DISORDER
  4. YAZ [Suspect]
     Indication: PREMENSTRUAL SYNDROME
  5. YASMIN [Suspect]
     Indication: CONTRACEPTION
     Dosage: UNK
     Dates: start: 200310, end: 200606
  6. YASMIN [Suspect]
     Indication: PREMENSTRUAL DYSPHORIC DISORDER
  7. YASMIN [Suspect]
     Indication: PREMENSTRUAL SYNDROME
  8. MIRCETTE [Concomitant]
  9. NEXIUM [Concomitant]
     Dosage: 40 MG, DAILY
     Dates: start: 20090109
  10. SYNTHROID [Concomitant]
     Indication: THYROID THERAPY
     Dosage: UNK
     Dates: start: 20090109
  11. SYNTHROID [Concomitant]
     Indication: THYROID THERAPY
     Dosage: UNK
     Dates: start: 2004
  12. TOPAMAX [Concomitant]
     Indication: MIGRAINE
     Dosage: 100 MG, BID
     Dates: start: 20090109
  13. TOPAMAX [Concomitant]
     Indication: MIGRAINE
     Dosage: UNK
     Dates: start: 2006
  14. ZYRTEC [Concomitant]
     Dosage: 10 MG, DAILY
     Dates: start: 20090109
  15. CYMBALTA [Concomitant]
     Dosage: 120 MG, DAILY
     Dates: start: 20090109
  16. RELPAX [Concomitant]
     Dosage: 40 MG, DAILY
     Dates: start: 20090109
  17. NAPROXEN [Concomitant]
     Dosage: 500 MG, DAILY AS NEEDED
     Dates: start: 20090109
  18. FLEXERIL [Concomitant]
     Dosage: 10 MG, EVERY 8 HOURS AS NEEDED
     Dates: start: 20090109
  19. FISH OIL [Concomitant]
     Dosage: 1 G, TID
     Dates: start: 20090205
  20. LORAZEPAM [Concomitant]
     Dosage: 0.5 MG, EVERY 4 HOURS AS NEEDED
     Dates: start: 20090205
  21. NASONEX [Concomitant]
     Dosage: UNK
     Dates: start: 20090205
  22. LUNESTA [Concomitant]
     Dosage: 3 MG, NIGHTLY
     Dates: start: 20090205
  23. PROPRANOLOL [Concomitant]
     Indication: CARDIAC DISORDER
     Dosage: 40 MG, BID
     Dates: start: 20090205
  24. PROPRANOLOL [Concomitant]
     Indication: CARDIAC DISORDER
     Dosage: UNK
     Dates: start: 2006
  25. ASPIRIN [Concomitant]
     Dosage: 325 MG, UNK
     Dates: start: 20090205
  26. VITAMIN C [Concomitant]

REACTIONS (9)
  - Thrombophlebitis superficial [Recovered/Resolved]
  - Gallbladder disorder [None]
  - Cholecystitis chronic [None]
  - Injury [None]
  - Pain [None]
  - Emotional distress [None]
  - Fear [None]
  - Anxiety [None]
  - Pain [None]
